FAERS Safety Report 14955441 (Version 9)
Quarter: 2019Q3

REPORT INFORMATION
  Report Type: Report from Study
  Country: BR (occurrence: BR)
  Receive Date: 20180531
  Receipt Date: 20190701
  Transmission Date: 20191004
  Serious: Yes (Hospitalization, Other)
  Sender: FDA-Public Use
  Company Number: BR-ROCHE-1849501

PATIENT
  Age: 49 Year
  Sex: Female
  Weight: 72 kg

DRUGS (17)
  1. XOLAIR [Suspect]
     Active Substance: OMALIZUMAB
     Route: 058
     Dates: start: 20180501
  2. GLIFAGE [Concomitant]
     Active Substance: METFORMIN HYDROCHLORIDE
     Indication: DIABETES MELLITUS
     Dosage: (SINCE 2 YEARS)
     Route: 048
  3. CORTISONE [Suspect]
     Active Substance: CORTISONE
     Indication: PRODUCT USED FOR UNKNOWN INDICATION
     Route: 065
  4. ALENIA [BUDESONIDE;FORMOTEROL FUMARATE] [Concomitant]
     Dosage: 2 OR 3 TIMES DAILY
     Route: 065
  5. SINGULAIR [Concomitant]
     Active Substance: MONTELUKAST SODIUM
     Indication: BRONCHITIS
     Dosage: 1 DF, QD (MORE THAN 20 YEARS)
     Route: 048
  6. SIMVASTATIN. [Concomitant]
     Active Substance: SIMVASTATIN
     Indication: BLOOD CHOLESTEROL ABNORMAL
     Route: 048
  7. HIGROTON [Concomitant]
     Active Substance: CHLORTHALIDONE
     Indication: HYPERTHYROIDISM
     Dosage: (SINCE 2 YEARS)
     Route: 048
  8. XOLAIR [Suspect]
     Active Substance: OMALIZUMAB
     Route: 058
     Dates: start: 20190213
  9. XOLAIR [Suspect]
     Active Substance: OMALIZUMAB
     Dosage: 2 DF (AMPOULES)
     Route: 058
  10. XOLAIR [Suspect]
     Active Substance: OMALIZUMAB
     Route: 058
     Dates: start: 20181120, end: 20181207
  11. XOLAIR [Suspect]
     Active Substance: OMALIZUMAB
     Route: 058
     Dates: start: 20190620
  12. ALENIA [BUDESONIDE;FORMOTEROL FUMARATE] [Concomitant]
     Indication: ASTHMA
     Dosage: 2 DF (INHALATION), QN (MORE THAN 20 YEARS)
     Route: 055
  13. XOLAIR [Suspect]
     Active Substance: OMALIZUMAB
     Route: 058
  14. XOLAIR [Suspect]
     Active Substance: OMALIZUMAB
     Route: 058
     Dates: start: 20170730
  15. XOLAIR [Suspect]
     Active Substance: OMALIZUMAB
     Indication: ASTHMA
     Route: 058
     Dates: start: 2012
  16. XOLAIR [Suspect]
     Active Substance: OMALIZUMAB
     Route: 058
     Dates: start: 20190109
  17. ALENIA [BUDESONIDE;FORMOTEROL FUMARATE] [Concomitant]
     Route: 055

REACTIONS (24)
  - Fatigue [Recovering/Resolving]
  - Weight increased [Unknown]
  - Bone disorder [Not Recovered/Not Resolved]
  - Insomnia [Unknown]
  - Blood pressure increased [Recovering/Resolving]
  - Dyspnoea [Recovered/Resolved]
  - Irritability [Unknown]
  - Dizziness [Recovering/Resolving]
  - Malaise [Recovered/Resolved]
  - Therapeutic response unexpected [Unknown]
  - Obstructive airways disorder [Recovered/Resolved]
  - Weight decreased [Not Recovered/Not Resolved]
  - Pain [Recovering/Resolving]
  - Asthmatic crisis [Recovered/Resolved]
  - Influenza [Unknown]
  - Pain in extremity [Not Recovered/Not Resolved]
  - Chest pain [Recovering/Resolving]
  - Skin discolouration [Unknown]
  - Asthma [Unknown]
  - Wheezing [Recovering/Resolving]
  - Injection site pain [Recovering/Resolving]
  - Palpitations [Unknown]
  - Feeling abnormal [Recovering/Resolving]
  - Influenza [Recovered/Resolved]

NARRATIVE: CASE EVENT DATE: 201305
